FAERS Safety Report 13466700 (Version 1)
Quarter: 2017Q2

REPORT INFORMATION
  Report Type: Spontaneous
  Country: US (occurrence: US)
  Receive Date: 20170420
  Receipt Date: 20170420
  Transmission Date: 20170830
  Serious: No
  Sender: FDA-Public Use
  Company Number: None

PATIENT
  Age: 44 Year
  Sex: Male

DRUGS (2)
  1. IMATINIB 100MG SUN-PHARMA [Suspect]
     Active Substance: IMATINIB
     Indication: MYELOID LEUKAEMIA
     Route: 048
     Dates: start: 20170224, end: 20170328
  2. IMATINIB 400MG SUN-PHARMA [Suspect]
     Active Substance: IMATINIB
     Indication: MYELOID LEUKAEMIA
     Route: 048
     Dates: start: 20170224, end: 20170329

REACTIONS (3)
  - Vomiting [None]
  - Product substitution issue [None]
  - Nausea [None]

NARRATIVE: CASE EVENT DATE: 20170310
